FAERS Safety Report 16509848 (Version 1)
Quarter: 2019Q3

REPORT INFORMATION
  Report Type: Report from Study
  Country: HN (occurrence: HN)
  Receive Date: 20190701
  Receipt Date: 20190701
  Transmission Date: 20191004
  Serious: Yes (Other)
  Sender: FDA-Public Use
  Company Number: PHHY2019HN148297

PATIENT
  Age: 64 Year
  Sex: Male

DRUGS (1)
  1. VYMADA [Suspect]
     Active Substance: SACUBITRIL\VALSARTAN
     Indication: PRODUCT USED FOR UNKNOWN INDICATION
     Dosage: 0.5 DF (50MG), BID (25MG IN THE MORNING AND 25MG IN THE NIGHT(BREAKS THE PILL))
     Route: 065

REACTIONS (3)
  - Underdose [Unknown]
  - Wrong technique in product usage process [Unknown]
  - Angina unstable [Unknown]
